FAERS Safety Report 20477444 (Version 1)
Quarter: 2022Q1

REPORT INFORMATION
  Report Type: Spontaneous
  Country: IT (occurrence: IT)
  Receive Date: 20220215
  Receipt Date: 20220215
  Transmission Date: 20220423
  Serious: Yes (Congenital Anomaly)
  Sender: FDA-Public Use
  Company Number: IT-MINISAL02-837240

PATIENT
  Age: 38 Year
  Sex: Female
  Weight: 48 kg

DRUGS (2)
  1. CETIRIZINE [Suspect]
     Active Substance: CETIRIZINE HYDROCHLORIDE
     Indication: Rash morbilliform
     Dosage: 10 MILLIGRAM, IN TOTAL
     Route: 065
     Dates: start: 20211125, end: 20211125
  2. COMIRNATY [Suspect]
     Active Substance: TOZINAMERAN
     Indication: COVID-19 immunisation
     Dosage: 0.3 MILLILITER, IN TOTAL
     Route: 065
     Dates: start: 20211125, end: 20211125

REACTIONS (1)
  - Abortion [Not Recovered/Not Resolved]

NARRATIVE: CASE EVENT DATE: 20220114
